FAERS Safety Report 4285941-0 (Version None)
Quarter: 2004Q1

REPORT INFORMATION
  Report Type: 
  Country: None (occurrence: None)
  Receive Date: 20040203
  Receipt Date: 20040121
  Transmission Date: 20041129
  Serious: Yes (Hospitalization)
  Sender: FDA-Public Use
  Company Number: 2004004165

PATIENT
  Age: 72 Year
  Sex: Female
  Weight: 58.9676 kg

DRUGS (5)
  1. ZOLOFT [Suspect]
     Indication: ASTHENIA
  2. ZOLOFT [Suspect]
     Indication: DEPRESSION
  3. PREDNISONE [Suspect]
     Indication: TEMPORAL ARTERITIS
     Dosage: 250 MG (DAILY), ORAL
     Route: 048
     Dates: start: 20031001
  4. ALPRAZOLAM [Suspect]
     Indication: ASTHENIA
  5. ALPRAZOLAM [Suspect]
     Indication: DEPRESSION

REACTIONS (17)
  - AGGRESSION [None]
  - ASTHENIA [None]
  - DEPRESSION [None]
  - DIFFICULTY IN WALKING [None]
  - HYPOTENSION [None]
  - INCONTINENCE [None]
  - LOCALISED SKIN REACTION [None]
  - MANIA [None]
  - MEDICATION ERROR [None]
  - MENTAL STATUS CHANGES [None]
  - MUSCULAR WEAKNESS [None]
  - PSYCHOMOTOR HYPERACTIVITY [None]
  - SEROTONIN SYNDROME [None]
  - SWELLING [None]
  - TREATMENT NONCOMPLIANCE [None]
  - TREMOR [None]
  - WEIGHT INCREASED [None]
